FAERS Safety Report 16191403 (Version 2)
Quarter: 2019Q2

REPORT INFORMATION
  Report Type: Spontaneous
  Country: FR (occurrence: FR)
  Receive Date: 20190412
  Receipt Date: 20190417
  Transmission Date: 20190711
  Serious: Yes (Other)
  Sender: FDA-Public Use
  Company Number: FR-ANIPHARMA-2019-FR-000080

PATIENT
  Sex: 0

DRUGS (1)
  1. CANDESARTAN CILEXETIL AND HYDROCHLOROTHIAZIDE [Suspect]
     Active Substance: CANDESARTAN CILEXETIL\HYDROCHLOROTHIAZIDE
     Indication: PRODUCT USED FOR UNKNOWN INDICATION
     Dosage: UNK
     Route: 048
     Dates: start: 2004

REACTIONS (12)
  - Nausea [Unknown]
  - Renal pain [Unknown]
  - Cough [Unknown]
  - Dehydration [Unknown]
  - Lip swelling [Unknown]
  - Muscle spasms [Unknown]
  - Paraesthesia [Unknown]
  - Chromaturia [Unknown]
  - Asthenia [Unknown]
  - Hypertension [Unknown]
  - Pruritus [Unknown]
  - Swollen tongue [Unknown]
